FAERS Safety Report 15842832 (Version 1)
Quarter: 2019Q1

REPORT INFORMATION
  Report Type: Spontaneous
  Country: GB (occurrence: GB)
  Receive Date: 20190118
  Receipt Date: 20190118
  Transmission Date: 20190417
  Serious: Yes (Hospitalization)
  Sender: FDA-Public Use
  Company Number: GB-PFIZER INC-2019019396

PATIENT
  Age: 48 Year
  Sex: Female
  Weight: 87 kg

DRUGS (4)
  1. DOTAREM [Suspect]
     Active Substance: GADOTERATE MEGLUMINE
     Indication: NUCLEAR MAGNETIC RESONANCE IMAGING
     Dosage: 20 ML, 1X/DAY
     Route: 042
     Dates: start: 20181123, end: 20181123
  2. SODIUM CHLORIDE. [Suspect]
     Active Substance: SODIUM CHLORIDE
     Indication: NUCLEAR MAGNETIC RESONANCE IMAGING
     Dosage: 10 ML, 1X/DAY
     Route: 042
     Dates: start: 20181123, end: 20181123
  3. SODIUM CHLORIDE. [Suspect]
     Active Substance: SODIUM CHLORIDE
     Dosage: 50 ML, UNK
  4. BOWELL [Suspect]
     Active Substance: LACTULOSE
     Indication: NUCLEAR MAGNETIC RESONANCE IMAGING
     Dosage: 1 L, 1X/DAY
     Route: 048
     Dates: start: 20181123, end: 20181123

REACTIONS (2)
  - Rash [Recovered/Resolved]
  - Nausea [Recovered/Resolved]

NARRATIVE: CASE EVENT DATE: 20181123
